FAERS Safety Report 23829868 (Version 1)
Quarter: 2024Q2

REPORT INFORMATION
  Report Type: Spontaneous
  Country: US (occurrence: US)
  Receive Date: 20240508
  Receipt Date: 20240508
  Transmission Date: 20240715
  Serious: No
  Sender: FDA-Public Use
  Company Number: US-VERRICA PHARMACEUTICALS INC.-2024VER000017

PATIENT
  Age: 11 Year
  Sex: Male

DRUGS (1)
  1. YCANTH [Suspect]
     Active Substance: CANTHARIDIN
     Indication: Skin lesion
     Dosage: UNK, AS DIRECTED
     Route: 061
     Dates: start: 20240412

REACTIONS (2)
  - Application site pain [Recovering/Resolving]
  - Application site vesicles [Recovering/Resolving]

NARRATIVE: CASE EVENT DATE: 20240412
